FAERS Safety Report 8610995-8 (Version None)
Quarter: 2012Q3

REPORT INFORMATION
  Report Type: 
  Country: None (occurrence: None)
  Receive Date: 20120822
  Receipt Date: 20120814
  Transmission Date: 20120928
  Serious: Yes (Hospitalization)
  Sender: FDA-Public Use
  Company Number: US-JNJFOC-20120804963

PATIENT
  Sex: Female
  Weight: 94.8 kg

DRUGS (2)
  1. CORTICOSTEROIDS [Concomitant]
  2. INFLIXIMAB, RECOMBINANT [Suspect]
     Indication: PSORIASIS
     Route: 042
     Dates: start: 20080201

REACTIONS (1)
  - MUSCULOSKELETAL CHEST PAIN [None]
